FAERS Safety Report 16595129 (Version 2)
Quarter: 2019Q3

REPORT INFORMATION
  Report Type: Spontaneous
  Country: US (occurrence: US)
  Receive Date: 20190718
  Receipt Date: 20190813
  Transmission Date: 20191004
  Serious: Yes (Hospitalization)
  Sender: FDA-Public Use
  Company Number: PHEH2019US029121

PATIENT
  Sex: Female

DRUGS (2)
  1. COSENTYX [Suspect]
     Active Substance: SECUKINUMAB
     Dosage: 300 MG, QMO
     Route: 030
     Dates: start: 20190220
  2. COSENTYX [Suspect]
     Active Substance: SECUKINUMAB
     Indication: PSORIASIS
     Dosage: UNK, QW (LOADING DOSE)
     Route: 058

REACTIONS (7)
  - Spinal cord oedema [Unknown]
  - Incorrect route of product administration [Unknown]
  - Arthralgia [Recovering/Resolving]
  - Joint stiffness [Recovering/Resolving]
  - Bladder disorder [Unknown]
  - Spinal cord compression [Unknown]
  - Intervertebral disc protrusion [Unknown]
